FAERS Safety Report 5250734-4 (Version None)
Quarter: 2007Q1

REPORT INFORMATION
  Report Type: 
  Country: None (occurrence: None)
  Receive Date: 20070228
  Receipt Date: 20060628
  Transmission Date: 20070707
  Serious: No
  Sender: FDA-Public Use
  Company Number: US-GLAXOSMITHKLINE-A0610641A

PATIENT
  Sex: Female

DRUGS (5)
  1. LAMICTAL [Suspect]
     Indication: BIPOLAR DISORDER
     Dosage: 100MG AT NIGHT
     Route: 048
     Dates: start: 20040601
  2. ZYPREXA [Concomitant]
  3. LORAZEPAM [Concomitant]
  4. ABILIFY [Concomitant]
  5. SYNTHROID [Concomitant]

REACTIONS (3)
  - DENTAL CARIES [None]
  - GINGIVAL PAIN [None]
  - TOOTH DISCOLOURATION [None]
